FAERS Safety Report 25943634 (Version 1)
Quarter: 2025Q4

REPORT INFORMATION
  Report Type: Spontaneous
  Country: GB (occurrence: GB)
  Receive Date: 20251021
  Receipt Date: 20251021
  Transmission Date: 20260117
  Serious: Yes (Other)
  Sender: AUROBINDO
  Company Number: GB-MHRA-TPP27869723C7041169YC1759845955613

PATIENT
  Age: 53 Year
  Sex: Male
  Weight: 100 kg

DRUGS (7)
  1. SERTRALINE HYDROCHLORIDE [Suspect]
     Active Substance: SERTRALINE HYDROCHLORIDE
     Indication: Ill-defined disorder
     Dosage: 50 FEMTOMOLE PER MILLIGRAM, ONCE A DAY
     Route: 065
     Dates: start: 20240213
  2. AMITRIPTYLINE HYDROCHLORIDE [Concomitant]
     Active Substance: AMITRIPTYLINE HYDROCHLORIDE
     Indication: Ill-defined disorder
     Dosage: UNK UNK, AS NECESSARY (ONE AT NIGHT AS NEEDED)
     Route: 065
     Dates: start: 20240213
  3. ASPIRIN [Concomitant]
     Active Substance: ASPIRIN
     Indication: Ill-defined disorder
     Dosage: UNK UNK, DAILY (TAKE ONE DAILY)
     Route: 065
     Dates: start: 20240213
  4. ATORVASTATIN [Concomitant]
     Active Substance: ATORVASTATIN
     Indication: Ill-defined disorder
     Dosage: UNK UNK, DAILY (TAKE ONE DAILY)
     Route: 065
     Dates: start: 20240213
  5. BETAMETHASONE SODIUM PHOSPHATE [Concomitant]
     Active Substance: BETAMETHASONE SODIUM PHOSPHATE
     Indication: Ill-defined disorder
     Dosage: UNK UNK, 3 TIMES A DAY (1 DROP BILATERALLY TO NOSTRILS THREE TIMES PER DAY)
     Route: 065
     Dates: start: 20240213
  6. FLUTICASONE FUROATE [Concomitant]
     Active Substance: FLUTICASONE FUROATE
     Indication: Ill-defined disorder
     Dosage: UNK UNK, ONCE A DAY (USE ONCE DAILY)
     Route: 065
     Dates: start: 20240213
  7. RAMIPRIL [Concomitant]
     Active Substance: RAMIPRIL
     Indication: Ill-defined disorder
     Dosage: UNK UNK, EVERY MORNING (TAKE ONE EVERY MORNING TO REDUCE BLOOD PRESSURE...)
     Route: 065
     Dates: start: 20240213

REACTIONS (1)
  - Lymphadenopathy [Recovering/Resolving]
